FAERS Safety Report 8889299 (Version 1)
Quarter: 2012Q4

REPORT INFORMATION
  Report Type: 
  Country: US (occurrence: US)
  Receive Date: 20121106
  Receipt Date: 20121106
  Transmission Date: 20130627
  Serious: No
  Sender: FDA-Public Use
  Company Number: US-ASTRAZENECA-2012SE81382

PATIENT
  Age: 75 Year
  Sex: Female

DRUGS (6)
  1. CRESTOR [Suspect]
     Indication: BLOOD CHOLESTEROL ABNORMAL
     Route: 048
  2. AMLODIPINE [Concomitant]
     Indication: BLOOD PRESSURE ABNORMAL
  3. LOSARTAN HCT [Concomitant]
     Indication: BLOOD PRESSURE ABNORMAL
  4. PREMARIN [Concomitant]
     Indication: HORMONE REPLACEMENT THERAPY
  5. VIDELLE [Concomitant]
     Indication: HORMONE REPLACEMENT THERAPY
  6. TRAZADONE [Concomitant]
     Indication: SLEEP DISORDER

REACTIONS (4)
  - Muscle rigidity [Unknown]
  - Insomnia [Unknown]
  - Muscle spasms [Unknown]
  - Intentional drug misuse [Unknown]
